FAERS Safety Report 4811254-1 (Version None)
Quarter: 2005Q4

REPORT INFORMATION
  Report Type: 
  Country: None (occurrence: None)
  Receive Date: 20051027
  Receipt Date: 20050920
  Transmission Date: 20060501
  Serious: Yes (Hospitalization)
  Sender: FDA-Public Use
  Company Number: US-MERCK-0509USA03021

PATIENT
  Sex: Female
  Weight: 70 kg

DRUGS (12)
  1. VIOXX [Suspect]
     Route: 048
     Dates: start: 20010316, end: 20011213
  2. INDAPAMIDE [Concomitant]
     Route: 065
  3. LORCET-HD [Concomitant]
     Route: 065
  4. COREG [Concomitant]
     Route: 065
  5. PAXIL [Concomitant]
     Route: 065
  6. LANTUS [Concomitant]
     Route: 065
  7. POTASSIUM (UNSPECIFIED) [Concomitant]
     Route: 065
  8. NEXIUM [Concomitant]
     Route: 065
  9. FUROSEMIDE [Concomitant]
     Route: 065
  10. [THERAPY UNSPECIFIED] [Concomitant]
     Route: 065
  11. [THERAPY UNSPECIFIED] [Concomitant]
     Route: 065
  12. [THERAPY UNSPECIFIED] [Concomitant]
     Route: 065

REACTIONS (4)
  - CARDIAC MURMUR [None]
  - CEREBROVASCULAR ACCIDENT [None]
  - HEART RATE IRREGULAR [None]
  - TRANSIENT ISCHAEMIC ATTACK [None]
